FAERS Safety Report 6061483-7 (Version None)
Quarter: 2009Q1

REPORT INFORMATION
  Report Type: 
  Country: None (occurrence: None)
  Receive Date: 20090202
  Receipt Date: 20090127
  Transmission Date: 20090719
  Serious: Yes (Other)
  Sender: FDA-Public Use
  Company Number: JP-ASTRAZENECA-2008AP09247

PATIENT
  Age: 69 Year
  Sex: Male
  Weight: 57 kg

DRUGS (5)
  1. IRESSA [Suspect]
     Indication: NON-SMALL CELL LUNG CANCER
     Route: 048
     Dates: start: 20080821, end: 20081127
  2. MUCOSTA [Concomitant]
     Indication: GASTRITIS
     Route: 048
     Dates: start: 20080828, end: 20081104
  3. LAC-B [Concomitant]
     Indication: DIARRHOEA
     Route: 048
     Dates: start: 20080821, end: 20080824
  4. FLOMOX [Concomitant]
     Indication: BRONCHITIS
     Route: 048
     Dates: start: 20081001, end: 20081012
  5. MUCOTRON [Concomitant]
     Indication: BRONCHITIS
     Route: 048
     Dates: start: 20081001, end: 20081012

REACTIONS (1)
  - LIVER DISORDER [None]
